FAERS Safety Report 16872882 (Version 10)
Quarter: 2020Q4

REPORT INFORMATION
  Report Type: Spontaneous
  Country: IN (occurrence: IN)
  Receive Date: 20191001
  Receipt Date: 20201224
  Transmission Date: 20210113
  Serious: Yes (Hospitalization, Other)
  Sender: FDA-Public Use
  Company Number: IN-PFIZER INC-2019316097

PATIENT
  Age: 38 Year
  Sex: Female
  Weight: 78.7 kg

DRUGS (5)
  1. PALBACE [Suspect]
     Active Substance: PALBOCICLIB
     Indication: BREAST CANCER METASTATIC
     Dosage: 100 MG, DAILY
     Route: 048
     Dates: start: 20180904
  2. LETROZOLE. [Suspect]
     Active Substance: LETROZOLE
     Dosage: 2.5 MG, 1X/DAY
  3. PALBACE [Suspect]
     Active Substance: PALBOCICLIB
     Dosage: 125 MG, CYCLIC (ONCE A DAY, 21 DAYS AND 7 DAYS OFF)
     Route: 048
     Dates: start: 20180904
  4. VITAMIN D 2000 [Concomitant]
     Active Substance: VITAMIN D NOS
     Dosage: UNK
  5. CALCIUM [Concomitant]
     Active Substance: CALCIUM
     Dosage: UNK

REACTIONS (11)
  - Neoplasm progression [Unknown]
  - Procedural pain [Unknown]
  - Pseudomonas test positive [Unknown]
  - Post procedural haemorrhage [Not Recovered/Not Resolved]
  - Skin mass [Unknown]
  - Weight decreased [Unknown]
  - Impaired healing [Unknown]
  - Malaise [Unknown]
  - Wound [Not Recovered/Not Resolved]
  - COVID-19 [Unknown]
  - Neoplasm recurrence [Unknown]
